FAERS Safety Report 8380480-X (Version None)
Quarter: 2012Q2

REPORT INFORMATION
  Report Type: 
  Country: None (occurrence: None)
  Receive Date: 20120523
  Receipt Date: 20120516
  Transmission Date: 20120825
  Serious: Yes (Other)
  Sender: FDA-Public Use
  Company Number: JP-GLAXOSMITHKLINE-B0792419A

PATIENT
  Age: 56 Year
  Sex: Male
  Weight: 83 kg

DRUGS (8)
  1. VANCOMYCIN HYDROCHLORIDE [Concomitant]
     Route: 065
  2. LAMICTAL [Suspect]
     Indication: EPILEPSY
     Dosage: 25MG TWICE PER DAY
     Route: 048
  3. VALPROATE SODIUM [Concomitant]
     Dosage: 800MG PER DAY
     Route: 048
  4. ZOVIRAX [Suspect]
     Route: 042
  5. CEFTRIAXONE SODIUM [Concomitant]
  6. METHIMAZOLE [Concomitant]
     Route: 065
  7. CARBAMAZEPINE [Concomitant]
     Route: 048
  8. MIDAZOLAM [Concomitant]

REACTIONS (12)
  - STATUS EPILEPTICUS [None]
  - ANTI-THYROID ANTIBODY [None]
  - RASH [None]
  - RESPIRATORY ARREST [None]
  - PNEUMONIA [None]
  - RENAL FAILURE ACUTE [None]
  - CONVULSION [None]
  - CSF PROTEIN INCREASED [None]
  - HYPERSENSITIVITY [None]
  - RESPIRATORY DISORDER [None]
  - ALTERED STATE OF CONSCIOUSNESS [None]
  - URINARY TRACT INFECTION [None]
